FAERS Safety Report 5854450-7 (Version None)
Quarter: 2008Q3

REPORT INFORMATION
  Report Type: 
  Country: None (occurrence: None)
  Receive Date: 20080822
  Receipt Date: 20080811
  Transmission Date: 20090109
  Serious: Yes (Other)
  Sender: FDA-Public Use
  Company Number: GB-PFIZER INC-2008050335

PATIENT
  Age: 29 Year
  Sex: Female

DRUGS (3)
  1. LATANOPROST [Suspect]
  2. APRACLONIDINE [Suspect]
  3. TIMOLOL MALEATE [Suspect]
     Indication: INTRAOCULAR PRESSURE INCREASED

REACTIONS (3)
  - DRUG INEFFECTIVE [None]
  - TRABECULECTOMY [None]
  - VITRECTOMY [None]
